FAERS Safety Report 7914804-1 (Version None)
Quarter: 2011Q4

REPORT INFORMATION
  Report Type: 
  Country: None (occurrence: None)
  Receive Date: 20111115
  Receipt Date: 20111102
  Transmission Date: 20120403
  Serious: Yes (Other)
  Sender: FDA-Public Use
  Company Number: JP-SANOFI-AVENTIS-2011SA073620

PATIENT

DRUGS (2)
  1. FUROSEMIDE [Suspect]
     Dosage: 38 CYCLES.
     Route: 065
  2. METHOTREXATE [Interacting]
     Dosage: MORE THAN 1 G/M2.
     Route: 065

REACTIONS (4)
  - RENAL DISORDER [None]
  - DRUG LEVEL INCREASED [None]
  - DRUG INTERACTION [None]
  - BLOOD CREATININE INCREASED [None]
